FAERS Safety Report 15609970 (Version 2)
Quarter: 2019Q2

REPORT INFORMATION
  Report Type: Spontaneous
  Country: JP (occurrence: JP)
  Receive Date: 20181113
  Receipt Date: 20190425
  Transmission Date: 20190711
  Serious: Yes (Other)
  Sender: FDA-Public Use
  Company Number: JP-SUN PHARMACEUTICAL INDUSTRIES LTD-2018R1-190483

PATIENT
  Age: 55 Year
  Sex: Female

DRUGS (1)
  1. KENACORT [Suspect]
     Active Substance: TRIAMCINOLONE
     Indication: TENOSYNOVITIS STENOSANS
     Dosage: UNK
     Route: 065

REACTIONS (1)
  - Osteonecrosis [Recovering/Resolving]
